FAERS Safety Report 21726187 (Version 1)
Quarter: 2022Q4

REPORT INFORMATION
  Report Type: Spontaneous
  Country: US (occurrence: US)
  Receive Date: 20221214
  Receipt Date: 20221214
  Transmission Date: 20230113
  Serious: No
  Sender: FDA-Public Use
  Company Number: US-NOVEN PHARMACEUTICALS, INC.-2022-NOV-US000219

PATIENT
  Sex: Female

DRUGS (5)
  1. MINIVELLE [Suspect]
     Active Substance: ESTRADIOL
     Indication: Artificial menopause
     Dosage: 0.05 MG, UNK
     Route: 062
     Dates: start: 202209
  2. MINIVELLE [Suspect]
     Active Substance: ESTRADIOL
     Indication: Osteoporosis postmenopausal
     Dosage: 0.05 MG, UNK
     Route: 062
     Dates: start: 20220920
  3. MINIVELLE [Suspect]
     Active Substance: ESTRADIOL
     Indication: Oestrogen therapy
     Dosage: 0.05 MG, EVERY 3-4 DAYS
     Route: 062
     Dates: start: 2022
  4. MINIVELLE [Suspect]
     Active Substance: ESTRADIOL
     Dosage: 0.025 MG
     Route: 062
     Dates: start: 202203
  5. MINIVELLE [Suspect]
     Active Substance: ESTRADIOL
     Dosage: 0.05 MG, EVERY 3-4 DAYS
     Route: 062
     Dates: start: 201312

REACTIONS (7)
  - Lethargy [Recovered/Resolved]
  - Headache [Recovered/Resolved]
  - Malaise [Unknown]
  - Migraine [Not Recovered/Not Resolved]
  - Therapeutic product ineffective [Not Recovered/Not Resolved]
  - Product adhesion issue [Recovered/Resolved]
  - Device physical property issue [Not Recovered/Not Resolved]

NARRATIVE: CASE EVENT DATE: 20180101
